FAERS Safety Report 5118883-9 (Version None)
Quarter: 2006Q4

REPORT INFORMATION
  Report Type: 
  Country: None (occurrence: None)
  Receive Date: 20061002
  Receipt Date: 20060927
  Transmission Date: 20070319
  Serious: Yes (Hospitalization)
  Sender: FDA-Public Use
  Company Number: US-BOEHRINGER INGELHEIM PHARMACEUTICALS, INC.-2006-DE-05167GD

PATIENT
  Age: 54 Year
  Sex: Female

DRUGS (2)
  1. PRAMIPEXOLE DIHYDROCHLORIDE [Suspect]
     Indication: FIBROMYALGIA
     Dosage: LOW DOSE
  2. PRAMIPEXOLE DIHYDROCHLORIDE [Suspect]

REACTIONS (2)
  - NARCOLEPSY [None]
  - POSTURE ABNORMAL [None]
